FAERS Safety Report 12510766 (Version 1)
Quarter: 2016Q2

REPORT INFORMATION
  Report Type: Spontaneous
  Country: US (occurrence: US)
  Receive Date: 20160629
  Receipt Date: 20160629
  Transmission Date: 20160815
  Serious: No
  Sender: FDA-Public Use
  Company Number: US-RECKITT BENCKISER HEALTHCARE INT LIMITED-RB-82526-2016

PATIENT
  Age: 62 Year
  Sex: Female

DRUGS (1)
  1. MUCINEX [Suspect]
     Active Substance: GUAIFENESIN
     Indication: COUGH
     Dosage: 3 WEEKS
     Route: 065

REACTIONS (3)
  - Urinary incontinence [Unknown]
  - Incorrect drug administration duration [Unknown]
  - Drug ineffective [Not Recovered/Not Resolved]
